FAERS Safety Report 12390587 (Version 1)
Quarter: 2016Q2

REPORT INFORMATION
  Report Type: Spontaneous
  Country: US (occurrence: US)
  Receive Date: 20160520
  Receipt Date: 20160520
  Transmission Date: 20160815
  Serious: Yes (Other)
  Sender: FDA-Public Use
  Company Number: US-DEPOMED, INC.-US-2016DEP009625

PATIENT

DRUGS (8)
  1. BUPIVACAINE. [Suspect]
     Active Substance: BUPIVACAINE
     Indication: BREAKTHROUGH PAIN
     Dosage: 15 ML, TWICE
     Route: 008
  2. BUPIVACAINE. [Suspect]
     Active Substance: BUPIVACAINE
     Dosage: 5 ML, SINGLE
     Route: 008
  3. BUPIVACAINE. [Suspect]
     Active Substance: BUPIVACAINE
     Indication: LABOUR PAIN
     Dosage: UNK
     Route: 008
  4. FENTANYL. [Suspect]
     Active Substance: FENTANYL
     Dosage: 100 1G, SINGLE
     Route: 008
  5. FENTANYL. [Suspect]
     Active Substance: FENTANYL
     Indication: LABOUR PAIN
     Dosage: 25 1G, SINGLE
     Route: 037
  6. FENTANYL. [Suspect]
     Active Substance: FENTANYL
     Dosage: 2 1G/ML, UNK
     Route: 008
  7. LIDOCAINE. [Suspect]
     Active Substance: LIDOCAINE
     Indication: BREAKTHROUGH PAIN
     Dosage: 5 ML, SINGLE
     Route: 008
  8. LIDOCAINE W/EPINEPHRINE [Suspect]
     Active Substance: EPINEPHRINE\LIDOCAINE
     Indication: ANAESTHESIA
     Dosage: 20 ML, SINGLE
     Route: 008

REACTIONS (3)
  - Maternal exposure during delivery [Recovered/Resolved]
  - Pain [Recovered/Resolved]
  - Breakthrough pain [Recovered/Resolved]
